FAERS Safety Report 21731977 (Version 2)
Quarter: 2022Q4

REPORT INFORMATION
  Report Type: Report from Study
  Country: US (occurrence: US)
  Receive Date: 20221215
  Receipt Date: 20221216
  Transmission Date: 20230112
  Serious: Yes (Other)
  Sender: FDA-Public Use
  Company Number: US-ABBVIE-4235639

PATIENT
  Sex: Male
  Weight: 70.306 kg

DRUGS (2)
  1. DUOPA [Suspect]
     Active Substance: CARBIDOPA\LEVODOPA
     Indication: Parkinson^s disease
     Route: 050
     Dates: start: 20210614
  2. DUOPA [Suspect]
     Active Substance: CARBIDOPA\LEVODOPA

REACTIONS (6)
  - Gastric haemorrhage [Not Recovered/Not Resolved]
  - Stoma site discharge [Not Recovered/Not Resolved]
  - Stoma complication [Not Recovered/Not Resolved]
  - Patient-device incompatibility [Not Recovered/Not Resolved]
  - Stoma site haemorrhage [Unknown]
  - Stoma site discharge [Unknown]

NARRATIVE: CASE EVENT DATE: 20220101
